FAERS Safety Report 7622342-9 (Version None)
Quarter: 2011Q3

REPORT INFORMATION
  Report Type: 
  Country: None (occurrence: None)
  Receive Date: 20110720
  Receipt Date: 20110713
  Transmission Date: 20111222
  Serious: Yes (Other)
  Sender: FDA-Public Use
  Company Number: US-SHIRE-ALL1-2011-02267

PATIENT

DRUGS (4)
  1. INTUNIV [Suspect]
     Indication: PRODUCT USED FOR UNKNOWN INDICATION
     Dosage: 3 MG, 1X/DAY:QD
     Route: 048
  2. INTUNIV [Suspect]
     Dosage: 1 MG, 1X/DAY:QD
     Route: 048
  3. INTUNIV [Suspect]
     Dosage: 2 MG, 1X/DAY:QD
     Route: 048
  4. RISPERIDONE [Concomitant]
     Indication: PRODUCT USED FOR UNKNOWN INDICATION
     Dosage: UNK, UNKNOWN
     Route: 048

REACTIONS (2)
  - SYNCOPE [None]
  - DIZZINESS [None]
